FAERS Safety Report 19436552 (Version 1)
Quarter: 2021Q2

REPORT INFORMATION
  Report Type: Spontaneous
  Country: CN (occurrence: CN)
  Receive Date: 20210618
  Receipt Date: 20210618
  Transmission Date: 20210717
  Serious: Yes (Death, Other)
  Sender: FDA-Public Use
  Company Number: CN-ASTRAZENECA-2021A506930

PATIENT
  Age: 52 Year
  Sex: Female

DRUGS (7)
  1. PEMETREXED. [Concomitant]
     Active Substance: PEMETREXED
     Dosage: 800MG
  2. CISPLATIN. [Concomitant]
     Active Substance: CISPLATIN
     Dosage: 30MG 1?3 DAY
  3. GEFITINIB. [Suspect]
     Active Substance: GEFITINIB
     Indication: LUNG ADENOCARCINOMA STAGE IV
     Route: 048
     Dates: start: 2017
  4. OSIMERTINIB. [Suspect]
     Active Substance: OSIMERTINIB
     Indication: LUNG ADENOCARCINOMA STAGE IV
     Route: 048
     Dates: start: 201802
  5. GEFITINIB. [Suspect]
     Active Substance: GEFITINIB
     Indication: LUNG ADENOCARCINOMA STAGE IV
     Dosage: 250 MG QD
     Route: 048
     Dates: start: 201901
  6. CATEQUENTINIB. [Concomitant]
     Active Substance: CATEQUENTINIB
     Dates: end: 202005
  7. OSIMERTINIB. [Suspect]
     Active Substance: OSIMERTINIB
     Indication: LUNG ADENOCARCINOMA STAGE IV
     Dosage: 80MG QD
     Route: 048
     Dates: start: 201901, end: 202005

REACTIONS (5)
  - Acquired gene mutation [Unknown]
  - Rash [Unknown]
  - Paronychia [Unknown]
  - Drug resistance [Unknown]
  - Treatment failure [Unknown]
